FAERS Safety Report 7979761-0 (Version None)
Quarter: 2011Q4

REPORT INFORMATION
  Report Type: 
  Country: None (occurrence: None)
  Receive Date: 20111214
  Receipt Date: 20111129
  Transmission Date: 20120403
  Serious: Yes (Hospitalization)
  Sender: FDA-Public Use
  Company Number: ES-WATSON-2011-21263

PATIENT
  Age: 57 Year
  Sex: Female

DRUGS (2)
  1. SOY ISOFLAVENOID [Suspect]
     Indication: SUPPLEMENTATION THERAPY
  2. SIMVASTATIN [Suspect]
     Indication: HYPERCHOLESTEROLAEMIA
     Dosage: 20 MG DAILY

REACTIONS (3)
  - LIVER INJURY [None]
  - LIVER FUNCTION TEST ABNORMAL [None]
  - HEPATOCELLULAR INJURY [None]
